FAERS Safety Report 6023372-3 (Version None)
Quarter: 2008Q4

REPORT INFORMATION
  Report Type: 
  Country: None (occurrence: None)
  Receive Date: 20081230
  Receipt Date: 20081219
  Transmission Date: 20090506
  Serious: Yes (Life-Threatening, Hospitalization)
  Sender: FDA-Public Use
  Company Number: FR-WATSON-2008-07346

PATIENT
  Age: 42 Year
  Sex: Female

DRUGS (2)
  1. TRELSTAR DEPOT [Suspect]
     Indication: INFERTILITY
     Dosage: 3MG, ONCE
     Route: 065
     Dates: start: 20080911, end: 20080911
  2. PUREGON                            /01348901/ [Concomitant]
     Indication: INFERTILITY
     Dosage: UNK
     Route: 065

REACTIONS (20)
  - ACINETOBACTER BACTERAEMIA [None]
  - CAPILLARY LEAK SYNDROME [None]
  - CARDIO-RESPIRATORY ARREST [None]
  - COMPARTMENT SYNDROME [None]
  - ESCHERICHIA SEPSIS [None]
  - GENERALISED OEDEMA [None]
  - HYPOALBUMINAEMIA [None]
  - HYPOTENSION [None]
  - HYPOVOLAEMIA [None]
  - HYPOVOLAEMIC SHOCK [None]
  - MALAISE [None]
  - MUSCLE NECROSIS [None]
  - MUSCULOSKELETAL DISORDER [None]
  - NOSOCOMIAL INFECTION [None]
  - OEDEMA PERIPHERAL [None]
  - RENAL FAILURE ACUTE [None]
  - RENAL TUBULAR NECROSIS [None]
  - RHABDOMYOLYSIS [None]
  - STAPHYLOCOCCAL SEPSIS [None]
  - TENDON DISORDER [None]
